FAERS Safety Report 18923822 (Version 2)
Quarter: 2021Q1

REPORT INFORMATION
  Report Type: Spontaneous
  Country: GB (occurrence: GB)
  Receive Date: 20210222
  Receipt Date: 20210226
  Transmission Date: 20210420
  Serious: Yes (Other)
  Sender: FDA-Public Use
  Company Number: GB-PFIZER INC-2021147494

PATIENT
  Age: 73 Year
  Sex: Female
  Weight: 108 kg

DRUGS (14)
  1. PARACETAMOL [Concomitant]
     Active Substance: ACETAMINOPHEN
     Dosage: TAKE TWO TABLETS FOUR TIMES DAILY AS REQUIRED
     Dates: start: 20191009
  2. RAMIPRIL. [Concomitant]
     Active Substance: RAMIPRIL
     Dosage: TAKE ONE DAILY
     Dates: start: 20191009
  3. ACICLOVIR [Concomitant]
     Active Substance: ACYCLOVIR
     Dosage: 1 DF (CHICKEN POX / SHINGLES (1ST LINE): TAKE ONE TAB...)
     Dates: start: 20210120, end: 20210127
  4. EUMOVATE [Concomitant]
     Active Substance: CLOBETASONE BUTYRATE
     Dosage: APPLY AT NIGHT. ONE FINGERTIP UNIT TO 2 HANDS AREA
     Dates: start: 20210120
  5. MEBEVERINE HYDROCHLORIDE [Concomitant]
     Active Substance: MEBEVERINE HYDROCHLORIDE
     Dosage: TAKE ONE THREE TIMES DAILY
     Dates: start: 20191009
  6. VENTOLIN [Concomitant]
     Active Substance: ALBUTEROL SULFATE
     Indication: COUGH
     Dosage: AS REQUIRED FOR BREATHLESSNESS AND COUGH AS A R.
     Dates: start: 20191030
  7. MACROGOL [Concomitant]
     Active Substance: POLYETHYLENE GLYCOLS
     Dosage: 1 TO BE TAKEN TWICE DAILY OR TO BE TAKEN THREE
     Dates: start: 20191104
  8. VENTOLIN [Concomitant]
     Active Substance: ALBUTEROL SULFATE
     Indication: DYSPNOEA
  9. LANSOPRAZOLE. [Concomitant]
     Active Substance: LANSOPRAZOLE
     Dosage: 1 DF, 1X/DAY (TAKE ONE EACH MORNING)
     Dates: start: 20191009
  10. SIMVASTATIN. [Concomitant]
     Active Substance: SIMVASTATIN
     Dosage: TAKE ONE EACH NIGHT
     Dates: start: 20191009
  11. ZOMORPH [Concomitant]
     Active Substance: MORPHINE SULFATE
     Dosage: TAKE ONE EVERY 12 HRS
     Dates: start: 20191009
  12. SERTRALINE HCL [Suspect]
     Active Substance: SERTRALINE HYDROCHLORIDE
     Dosage: 50 MG, 1X/DAY (MORNING)
     Dates: start: 20201106
  13. FOSTAIR [Concomitant]
     Active Substance: BECLOMETHASONE\FORMOTEROL
     Dosage: ONE TO TWO PUFFS TWICE DAILY
     Dates: start: 20191030
  14. GABAPENTIN. [Concomitant]
     Active Substance: GABAPENTIN
     Dosage: TAKE TWO CAPSULES THREE TIMES A DAY
     Dates: start: 20191009

REACTIONS (1)
  - Stevens-Johnson syndrome [Recovering/Resolving]

NARRATIVE: CASE EVENT DATE: 20210209
